FAERS Safety Report 5272215-4 (Version None)
Quarter: 2007Q1

REPORT INFORMATION
  Report Type: 
  Country: None (occurrence: None)
  Receive Date: 20070322
  Receipt Date: 20061213
  Transmission Date: 20070707
  Serious: No
  Sender: FDA-Public Use
  Company Number: US-GLAXOSMITHKLINE-A0631449A

PATIENT
  Age: 46 Year
  Sex: Female

DRUGS (4)
  1. AVANDARYL [Suspect]
     Dosage: 1TAB PER DAY
     Route: 048
  2. SULFATRIM-DS [Suspect]
     Dosage: 1TAB TWICE PER DAY
     Route: 048
     Dates: start: 20061207
  3. ACCUPRIL [Concomitant]
  4. ZANTAC [Concomitant]

REACTIONS (2)
  - HEADACHE [None]
  - VISION BLURRED [None]
